FAERS Safety Report 20182919 (Version 5)
Quarter: 2023Q1

REPORT INFORMATION
  Report Type: Spontaneous
  Country: US (occurrence: US)
  Receive Date: 20211214
  Receipt Date: 20230207
  Transmission Date: 20230417
  Serious: Yes (Other)
  Sender: FDA-Public Use
  Company Number: US-PFIZER INC-202101748488

PATIENT
  Age: 83 Year
  Sex: Male

DRUGS (16)
  1. VYNDAMAX [Suspect]
     Active Substance: TAFAMIDIS
     Indication: Cardiac disorder
     Dosage: 61 MG, 1X/DAY
     Route: 048
     Dates: start: 20210703
  2. AMIODARONE [Concomitant]
     Active Substance: AMIODARONE
     Indication: Cardiac disorder
     Dosage: 200 MG, 1X/DAY
  3. ATORVASTATIN [Concomitant]
     Active Substance: ATORVASTATIN
     Indication: Blood cholesterol
     Dosage: 20 MG, 1X/DAY
  4. DIGOXIN [Concomitant]
     Active Substance: DIGOXIN
     Indication: Cardiac disorder
     Dosage: 0.125 MG, 1X/DAY
     Dates: start: 2020
  5. VITAMIN D3 [Concomitant]
     Active Substance: CHOLECALCIFEROL
     Indication: Cardiac disorder
     Dosage: 5000 IU, 1X/DAY (OVER THE COUNTER; BEEN ON IT 3-4 YEARS)
  6. MORNIFLUMATE [Concomitant]
     Active Substance: MORNIFLUMATE
     Indication: Renal impairment
     Dosage: 0.4 MG, DAILY
  7. LORAZEPAM [Concomitant]
     Active Substance: LORAZEPAM
     Indication: Sleep disorder
     Dosage: 1 MG, DAILY
  8. MIDODRINE [Concomitant]
     Active Substance: MIDODRINE
     Indication: Cardiac disorder
     Dosage: 100 MG, 3X/DAY
  9. OMEPRAZOLE [Concomitant]
     Active Substance: OMEPRAZOLE
     Indication: Abdominal discomfort
     Dosage: 40 MG, DAILY
  10. WARFARIN [Concomitant]
     Active Substance: WARFARIN
     Indication: Blood disorder
     Dosage: 4 MG (4MG ONCE A DAY EXCEPT ON MONDAYS AND FRIDAYS WHEN HE TAKES 4.5MG)
  11. TRAMADOL [Concomitant]
     Active Substance: TRAMADOL
     Indication: Pain
     Dosage: 50 MG, AS NEEDED (50MG AS NEEDED FOR PAIN)
  12. TYLENOL [Concomitant]
     Active Substance: ACETAMINOPHEN
     Indication: Pain
     Dosage: UNK, AS NEEDED
  13. CARBIDOPA\LEVODOPA [Concomitant]
     Active Substance: CARBIDOPA\LEVODOPA
     Indication: Parkinson^s disease
     Dosage: UNK, 3X/DAY (10-100MG THREE TIMES PER DAY)
  14. IPRATROPIUM [Concomitant]
     Active Substance: IPRATROPIUM
     Indication: Rhinorrhoea
     Dosage: UNK, 3X/DAY (2 SPRAYS IN EACH NOSTRIL THREE TIMES PER DAY)
  15. VYZULTA [Concomitant]
     Active Substance: LATANOPROSTENE BUNOD
     Indication: Intraocular pressure test
     Dosage: UNK, DAILY (.024 ONE DROP IN EACH EYE AT BEDTIME)
  16. MUCINEX [Concomitant]
     Active Substance: GUAIFENESIN
     Indication: Nasopharyngitis
     Dosage: UNK, AS NEEDED

REACTIONS (10)
  - Cardiac amyloidosis [Unknown]
  - Arteriosclerosis coronary artery [Unknown]
  - Drug ineffective [Unknown]
  - Dyspnoea exertional [Unknown]
  - Fatigue [Unknown]
  - Pollakiuria [Unknown]
  - Arthritis [Unknown]
  - Gait disturbance [Unknown]
  - Hyperlipidaemia [Unknown]
  - Hypertension [Unknown]
